FAERS Safety Report 9106542 (Version 2)
Quarter: 2013Q1

REPORT INFORMATION
  Report Type: Report from Study
  Country: BR (occurrence: BR)
  Receive Date: 20130220
  Receipt Date: 20130314
  Transmission Date: 20140127
  Serious: Yes (Other)
  Sender: FDA-Public Use
  Company Number: BR-ROCHE-1192838

PATIENT
  Sex: Female
  Weight: 46 kg

DRUGS (8)
  1. MABTHERA [Suspect]
     Indication: PRODUCT USED FOR UNKNOWN INDICATION
     Dosage: LAST INFUSION PRIOR SAE: 28/AUG/2012
     Route: 042
     Dates: start: 20110113
  2. ALENDRONATE SODIUM [Concomitant]
  3. MEPROBAMATE [Concomitant]
  4. PREDNISONE [Concomitant]
  5. CHLOROQUINE DIPHOSPHATE [Concomitant]
  6. AMITRIPTYLINE [Concomitant]
  7. PIROXICAM [Concomitant]
  8. FAMOTIDINE [Concomitant]

REACTIONS (3)
  - Joint swelling [Unknown]
  - Therapeutic response decreased [Unknown]
  - Pain in extremity [Unknown]
